FAERS Safety Report 24263515 (Version 1)
Quarter: 2024Q3

REPORT INFORMATION
  Report Type: Spontaneous
  Country: KR (occurrence: KR)
  Receive Date: 20240829
  Receipt Date: 20240829
  Transmission Date: 20241017
  Serious: No
  Sender: MERCK
  Company Number: KR-009507513-2408KOR008913

PATIENT
  Sex: Female

DRUGS (1)
  1. LAGEVRIO [Suspect]
     Active Substance: MOLNUPIRAVIR
     Dosage: UNK

REACTIONS (3)
  - Accidental underdose [Unknown]
  - Feeling abnormal [Unknown]
  - Anxiety [Unknown]
